FAERS Safety Report 8020592-3 (Version None)
Quarter: 2012Q1

REPORT INFORMATION
  Report Type: 
  Country: None (occurrence: None)
  Receive Date: 20120103
  Receipt Date: 20111222
  Transmission Date: 20120608
  Serious: Yes (Other)
  Sender: FDA-Public Use
  Company Number: US-ASTRAZENECA-2011SE72603

PATIENT
  Age: 58 Year
  Sex: Male
  Weight: 86.2 kg

DRUGS (7)
  1. LISINOPRIL [Concomitant]
  2. METOPROLOL TARTRATE [Concomitant]
  3. PLAVIX [Concomitant]
  4. CRESTOR [Suspect]
     Route: 048
  5. FLU SHOT [Concomitant]
  6. CRESTOR [Suspect]
     Route: 048
  7. ZETIA [Concomitant]

REACTIONS (4)
  - MYOCARDIAL INFARCTION [None]
  - NASOPHARYNGITIS [None]
  - INFLUENZA [None]
  - CEREBROVASCULAR ACCIDENT [None]
